FAERS Safety Report 8986868 (Version 1)
Quarter: 2012Q4

REPORT INFORMATION
  Report Type: 
  Country: US (occurrence: US)
  Receive Date: 20121227
  Receipt Date: 20121227
  Transmission Date: 20130627
  Serious: No
  Sender: FDA-Public Use
  Company Number: US-BIOGENIDEC-2012BI062261

PATIENT
  Age: 65 Year
  Sex: Female

DRUGS (2)
  1. AVONEX [Suspect]
     Indication: MULTIPLE SCLEROSIS
     Route: 030
     Dates: start: 20110830
  2. BACLOFEN [Concomitant]
     Indication: MUSCLE SPASMS

REACTIONS (3)
  - Blood pressure increased [Not Recovered/Not Resolved]
  - Headache [Recovered/Resolved]
  - Malaise [Recovered/Resolved]
